FAERS Safety Report 15015660 (Version 2)
Quarter: 2018Q2

REPORT INFORMATION
  Report Type: Report from Study
  Country: RU (occurrence: RU)
  Receive Date: 20180615
  Receipt Date: 20180621
  Transmission Date: 20180711
  Serious: Yes (Hospitalization)
  Sender: FDA-Public Use
  Company Number: RU-ELI_LILLY_AND_COMPANY-RU201806006440

PATIENT
  Age: 48 Year
  Sex: Female
  Weight: 49 kg

DRUGS (3)
  1. MEK 162 [Concomitant]
     Active Substance: BINIMETINIB
     Indication: COLORECTAL CANCER
     Dosage: 45 MG, BID
     Route: 048
     Dates: start: 20180312, end: 20180318
  2. CETUXIMAB. [Suspect]
     Active Substance: CETUXIMAB
     Indication: COLORECTAL CANCER
     Dosage: 596 MG, WEEKLY (1/W)
     Route: 042
     Dates: start: 20180312, end: 20180330
  3. ENCORAFENIB [Concomitant]
     Active Substance: ENCORAFENIB
     Indication: COLORECTAL CANCER
     Dosage: 300 MG, DAILY
     Route: 048
     Dates: start: 20180312, end: 20180318

REACTIONS (1)
  - Malignant neoplasm progression [Recovered/Resolved]

NARRATIVE: CASE EVENT DATE: 20180318
